FAERS Safety Report 9794577 (Version 1)
Quarter: 2014Q1

REPORT INFORMATION
  Report Type: Spontaneous
  Country: US (occurrence: US)
  Receive Date: 20140102
  Receipt Date: 20140102
  Transmission Date: 20141002
  Serious: Yes (Other)
  Sender: FDA-Public Use
  Company Number: US-TEVA-453713USA

PATIENT
  Age: 42 Year
  Sex: Female
  Weight: 49.94 kg

DRUGS (1)
  1. PARAGARD 380A [Suspect]
     Indication: CONTRACEPTION
     Route: 015
     Dates: start: 20131106, end: 20131226

REACTIONS (3)
  - Device dislocation [Recovered/Resolved]
  - Pain [Unknown]
  - Discomfort [Unknown]
